FAERS Safety Report 4282913-7 (Version None)
Quarter: 2004Q1

REPORT INFORMATION
  Report Type: 
  Country: None (occurrence: None)
  Receive Date: 20040130
  Receipt Date: 20031110
  Transmission Date: 20041129
  Serious: No
  Sender: FDA-Public Use
  Company Number: US-BRISTOL-MYERS SQUIBB COMPANY-12431961

PATIENT
  Sex: Male

DRUGS (1)
  1. SERZONE [Suspect]
     Dosage: 100 MG IN A.M. + 100 MG HS.  CHANGED TO 100 MG A.M. +50 MG AT 6P.M. AND 50 MG AT MIDNIGHT.

REACTIONS (2)
  - INSOMNIA [None]
  - SOMNOLENCE [None]
